FAERS Safety Report 7548440-6 (Version None)
Quarter: 2011Q2

REPORT INFORMATION
  Report Type: 
  Country: None (occurrence: None)
  Receive Date: 20110615
  Receipt Date: 20110601
  Transmission Date: 20111010
  Serious: Yes (Other)
  Sender: FDA-Public Use
  Company Number: US-ELI_LILLY_AND_COMPANY-US201106002522

PATIENT
  Age: 82 Year
  Sex: Male

DRUGS (1)
  1. FORTEO [Suspect]
     Indication: BONE DISORDER
     Dosage: UNK, QD
     Route: 065
     Dates: start: 20110403, end: 20110501

REACTIONS (3)
  - BALANCE DISORDER [None]
  - LOSS OF CONSCIOUSNESS [None]
  - DIZZINESS [None]
